FAERS Safety Report 9474124 (Version 2)
Quarter: 2013Q3

REPORT INFORMATION
  Report Type: Report from Study
  Country: BR (occurrence: BR)
  Receive Date: 20130823
  Receipt Date: 20130826
  Transmission Date: 20140515
  Serious: Yes (Hospitalization, Other)
  Sender: FDA-Public Use
  Company Number: PHHY2013BR090456

PATIENT
  Age: 39 Year
  Sex: Male
  Weight: 68 kg

DRUGS (4)
  1. EVEROLIMUS [Suspect]
     Indication: RENAL TRANSPLANT
     Dosage: 1 MG, Q12H
     Route: 048
     Dates: start: 20090602, end: 20121219
  2. EVEROLIMUS [Suspect]
     Dosage: 0.75 MG, UNK
     Route: 048
     Dates: start: 20121220
  3. PREDNISONE [Concomitant]
     Indication: RENAL TRANSPLANT
     Dosage: 5 MG, UNK
     Dates: start: 200812
  4. PREDNISONE [Concomitant]
     Dosage: 5 MG, UNK
     Route: 048
     Dates: start: 20090401

REACTIONS (5)
  - Haemochromatosis [Recovering/Resolving]
  - Dyslipidaemia [Recovered/Resolved]
  - Hypertension [Recovered/Resolved]
  - Sinusitis [Recovered/Resolved]
  - Gastroenteritis [Recovered/Resolved]
